FAERS Safety Report 23524289 (Version 1)
Quarter: 2024Q1

REPORT INFORMATION
  Report Type: Spontaneous
  Country: IT (occurrence: IT)
  Receive Date: 20240214
  Receipt Date: 20240214
  Transmission Date: 20240409
  Serious: Yes (Other)
  Sender: FDA-Public Use
  Company Number: IT-GILEAD-2024-0661477

PATIENT
  Sex: Male

DRUGS (1)
  1. SOVALDI [Suspect]
     Active Substance: SOFOSBUVIR
     Indication: Chronic hepatitis C
     Dosage: UNK
     Route: 065
     Dates: start: 2012

REACTIONS (2)
  - Hepatitis C [Unknown]
  - Treatment failure [Unknown]
